FAERS Safety Report 8806533 (Version 1)
Quarter: 2012Q4

REPORT INFORMATION
  Report Type: Spontaneous
  Country: US (occurrence: None)
  Receive Date: 20120918
  Receipt Date: 20120918
  Transmission Date: 20130627
  Serious: Yes (Other)
  Sender: FDA-Public Use
  Company Number: FK201202618

PATIENT
  Age: 9 Day

DRUGS (5)
  1. AMIODARONE HCL [Suspect]
     Indication: ARRHYTHMIA
     Route: 040
  2. AMIODARONE HCL [Suspect]
     Indication: ARRHYTHMIA
     Route: 042
  3. AMIODARONE HCL [Suspect]
     Indication: ARRHYTHMIA
     Route: 042
  4. FLECAINIDE (FLECAINIDE) [Suspect]
     Dosage: 1) 80 mg/ m2,d, Oral
2) 100mg/m2/ d, Oral
     Route: 048
  5. PROPANOLOL [Concomitant]

REACTIONS (3)
  - Bundle branch block right [None]
  - Tachycardia [None]
  - Toxicity to various agents [None]
